FAERS Safety Report 8462593-7 (Version None)
Quarter: 2012Q2

REPORT INFORMATION
  Report Type: 
  Country: None (occurrence: None)
  Receive Date: 20120625
  Receipt Date: 20120402
  Transmission Date: 20120825
  Serious: No
  Sender: FDA-Public Use
  Company Number: US-BAUSCH-2012BL002317

PATIENT
  Sex: Male

DRUGS (2)
  1. BESIVANCE [Suspect]
     Indication: POSTOPERATIVE CARE
     Route: 047
  2. BESIVANCE [Suspect]
     Indication: OFF LABEL USE
     Route: 047

REACTIONS (1)
  - IMPAIRED HEALING [None]
